FAERS Safety Report 7733407-5 (Version None)
Quarter: 2011Q3

REPORT INFORMATION
  Report Type: 
  Country: None (occurrence: None)
  Receive Date: 20110902
  Receipt Date: 20110902
  Transmission Date: 20111222
  Serious: Yes (Disabling, Other)
  Sender: FDA-Public Use
  Company Number: None

PATIENT
  Sex: Female
  Weight: 77.1115 kg

DRUGS (1)
  1. INVEGA [Suspect]
     Indication: BIPOLAR II DISORDER
     Dosage: ONCE DAILY BY MOUTH
     Route: 048
     Dates: start: 20080101

REACTIONS (1)
  - INSULIN-REQUIRING TYPE 2 DIABETES MELLITUS [None]
